FAERS Safety Report 4592686-6 (Version None)
Quarter: 2005Q1

REPORT INFORMATION
  Report Type: 
  Country: None (occurrence: None)
  Receive Date: 20050228
  Receipt Date: 20050222
  Transmission Date: 20050727
  Serious: Yes (Death, Other)
  Sender: FDA-Public Use
  Company Number: PHEH2005US02371

PATIENT
  Sex: Female

DRUGS (5)
  1. LOTREL [Suspect]
     Indication: HYPERTENSION
     Dates: start: 20041027
  2. LOTREL [Suspect]
     Dosage: 5 MG AMLOD/10 MG BENAZ QD
     Dates: end: 20041026
  3. BENICAR [Concomitant]
  4. TOPROL-XL [Concomitant]
  5. LESCOL [Concomitant]

REACTIONS (9)
  - BLOOD PRESSURE FLUCTUATION [None]
  - CYSTITIS [None]
  - DYSPHAGIA [None]
  - FALL [None]
  - HAEMATOMA [None]
  - HAEMORRHAGE INTRACRANIAL [None]
  - HALLUCINATION [None]
  - SEPSIS [None]
  - UPPER LIMB FRACTURE [None]
